FAERS Safety Report 5088495-4 (Version None)
Quarter: 2006Q3

REPORT INFORMATION
  Report Type: 
  Country: None (occurrence: None)
  Receive Date: 20060822
  Receipt Date: 20060814
  Transmission Date: 20061208
  Serious: Yes (Hospitalization)
  Sender: FDA-Public Use
  Company Number: 2006090455

PATIENT
  Age: 33 Year
  Sex: Female
  Weight: 50 kg

DRUGS (5)
  1. AZULFIDINE EN-TABS [Suspect]
     Indication: RHEUMATOID ARTHRITIS
     Dosage: 1000 MG (500 MG, 2 IN 1 D), ORAL
     Route: 048
     Dates: start: 20050420, end: 20060701
  2. FOSAMAX [Concomitant]
  3. PREDNISOLONE [Concomitant]
  4. VOLTAREN [Concomitant]
  5. SHIOSOL (SODIUM AUROTHIOMALATE) [Concomitant]

REACTIONS (1)
  - LIVER FUNCTION TEST ABNORMAL [None]
